FAERS Safety Report 18198467 (Version 2)
Quarter: 2021Q3

REPORT INFORMATION
  Report Type: Spontaneous
  Country: US (occurrence: US)
  Receive Date: 20200826
  Receipt Date: 20210927
  Transmission Date: 20211014
  Serious: Yes (Other)
  Sender: FDA-Public Use
  Company Number: US-SA-2020SA227508

PATIENT
  Age: 51 Year
  Sex: Male

DRUGS (2)
  1. ZANTAC [Suspect]
     Active Substance: RANITIDINE HYDROCHLORIDE
     Indication: DYSPEPSIA
     Dosage: 150 MG, QD
     Dates: start: 199507, end: 201901
  2. LUPRON [Concomitant]
     Active Substance: LEUPROLIDE ACETATE

REACTIONS (1)
  - Prostate cancer [Unknown]

NARRATIVE: CASE EVENT DATE: 20180701
